FAERS Safety Report 5266272-9 (Version None)
Quarter: 2007Q1

REPORT INFORMATION
  Report Type: 
  Country: None (occurrence: None)
  Receive Date: 20070315
  Receipt Date: 20070305
  Transmission Date: 20070707
  Serious: Yes (Death)
  Sender: FDA-Public Use
  Company Number: US-MERCK-0703USA01598

PATIENT
  Age: 62 Year
  Sex: Male

DRUGS (2)
  1. CANCIDAS [Suspect]
     Indication: FUNGAL INFECTION
     Route: 042
  2. AMBISOME [Concomitant]
     Route: 065

REACTIONS (1)
  - CEREBRAL ASPERGILLOSIS [None]
